FAERS Safety Report 8227950-2 (Version None)
Quarter: 2012Q1

REPORT INFORMATION
  Report Type: 
  Country: None (occurrence: None)
  Receive Date: 20120322
  Receipt Date: 20120313
  Transmission Date: 20120608
  Serious: Yes (Other)
  Sender: FDA-Public Use
  Company Number: PHHY2012GB021964

PATIENT
  Sex: Male

DRUGS (6)
  1. WARFARIN SODIUM [Suspect]
     Dosage: 5 MG, UNK
     Route: 048
     Dates: start: 20111223
  2. LANSOPRAZOLE [Concomitant]
     Dosage: 30 MG, UNK
  3. WARFARIN SODIUM [Suspect]
     Dosage: 5 MG, UNK
     Route: 048
     Dates: start: 20111216
  4. LANSOPRAZOLE [Concomitant]
     Dosage: 60 MG, UNK
  5. WARFARIN SODIUM [Suspect]
     Indication: ATRIAL FIBRILLATION
     Dosage: 4 MG, UNK
     Route: 048
     Dates: start: 20111213
  6. WARFARIN SODIUM [Suspect]
     Dosage: 4 MG, UNK
     Route: 048
     Dates: start: 20120110

REACTIONS (5)
  - ABDOMINAL DISTENSION [None]
  - ANAEMIA [None]
  - RENAL IMPAIRMENT [None]
  - DIARRHOEA [None]
  - FLATULENCE [None]
